FAERS Safety Report 14807298 (Version 2)
Quarter: 2018Q2

REPORT INFORMATION
  Report Type: Spontaneous
  Country: JP (occurrence: JP)
  Receive Date: 20180425
  Receipt Date: 20180502
  Transmission Date: 20180711
  Serious: Yes (Other)
  Sender: FDA-Public Use
  Company Number: JP-GLAXOSMITHKLINE-JP2018JPN067714

PATIENT

DRUGS (1)
  1. SERETIDE [Suspect]
     Active Substance: FLUTICASONE PROPIONATE\SALMETEROL XINAFOATE
     Dosage: UNK
     Route: 055

REACTIONS (6)
  - Arrhythmia [Unknown]
  - Dysphonia [Unknown]
  - Respiratory failure [Unknown]
  - Product use issue [Unknown]
  - Overdose [Unknown]
  - Hypokalaemia [Unknown]
